FAERS Safety Report 9272126 (Version 1)
Quarter: 2013Q2

REPORT INFORMATION
  Report Type: Report from Study
  Country: US (occurrence: US)
  Receive Date: 20130506
  Receipt Date: 20130506
  Transmission Date: 20140414
  Serious: Yes (Hospitalization)
  Sender: FDA-Public Use
  Company Number: US-US-EMD SERONO, INC.-7208529

PATIENT
  Age: 39 Year
  Sex: Female
  Weight: 99 kg

DRUGS (2)
  1. REBIF [Suspect]
     Indication: MULTIPLE SCLEROSIS
     Route: 058
     Dates: start: 20120720
  2. SYNTHROID [Concomitant]
     Indication: THYROID DISORDER

REACTIONS (8)
  - Band sensation [Recovered/Resolved]
  - Palpitations [Recovered/Resolved]
  - Blood triglycerides increased [Unknown]
  - Blood pressure increased [Unknown]
  - Injection site bruising [Unknown]
  - Influenza like illness [Unknown]
  - Hepatic enzyme increased [Recovering/Resolving]
  - Injection site erythema [Unknown]
